FAERS Safety Report 7295528-3 (Version None)
Quarter: 2011Q1

REPORT INFORMATION
  Report Type: 
  Country: None (occurrence: None)
  Receive Date: 20110216
  Receipt Date: 20110209
  Transmission Date: 20110831
  Serious: No
  Sender: FDA-Public Use
  Company Number: US-ABBOTT-10P-163-0687596-00

PATIENT
  Sex: Female
  Weight: 73.548 kg

DRUGS (3)
  1. SIMCOR [Suspect]
     Indication: BLOOD TRIGLYCERIDES INCREASED
     Dosage: 500/20 BID REDUCED TO ONE TABLET ONE WEEK BEFORE DC
     Dates: start: 20100401, end: 20101104
  2. LISINOPRIL [Suspect]
     Indication: HYPERTENSION
     Dates: start: 20100801, end: 20101114
  3. TRICOR [Suspect]
     Indication: BLOOD TRIGLYCERIDES INCREASED
     Dates: start: 20101104, end: 20101107

REACTIONS (6)
  - BLOOD PRESSURE INCREASED [None]
  - ARRHYTHMIA [None]
  - FLUSHING [None]
  - PALPITATIONS [None]
  - RESTLESSNESS [None]
  - INSOMNIA [None]
